FAERS Safety Report 7637965-0 (Version None)
Quarter: 2011Q3

REPORT INFORMATION
  Report Type: 
  Country: None (occurrence: None)
  Receive Date: 20110720
  Receipt Date: 20110427
  Transmission Date: 20111222
  Serious: Yes (Hospitalization)
  Sender: FDA-Public Use
  Company Number: GAM-224-10-US

PATIENT
  Age: 62 Year
  Sex: Male

DRUGS (14)
  1. LOPRESSOR (METROPROLOL) [Concomitant]
  2. WARFARIN SODIUM [Concomitant]
  3. OCTAGAM [Suspect]
     Indication: CHRONIC INFLAMMATORY DEMYELINATING POLYRADICULONEUROPATHY
     Dosage: 60GM X 2DAYS AS NEEDED
     Route: 042
     Dates: start: 20100825
  4. SPIRIVA [Concomitant]
  5. OMEPRAZOLE [Concomitant]
  6. PREDNISONE TAB [Concomitant]
  7. AZITHROMYCIN [Concomitant]
  8. VITAMIN TAB [Concomitant]
  9. FOLIC ACID [Concomitant]
  10. METHOTREXATE [Concomitant]
  11. ADVAIR DISKUS 100/50 [Concomitant]
  12. OCTAGAM [Suspect]
     Indication: CHRONIC INFLAMMATORY DEMYELINATING POLYRADICULONEUROPATHY
     Dosage: 60GM X 2DAYS AS NEEDED
     Route: 042
     Dates: start: 20100702
  13. SINGULAIR [Concomitant]
  14. ASPIRIN [Concomitant]

REACTIONS (2)
  - PULMONARY EMBOLISM [None]
  - DEEP VEIN THROMBOSIS [None]
